FAERS Safety Report 24584156 (Version 1)
Quarter: 2024Q4

REPORT INFORMATION
  Report Type: Spontaneous
  Country: NL (occurrence: NL)
  Receive Date: 20241106
  Receipt Date: 20241106
  Transmission Date: 20250115
  Serious: Yes (Death, Life-Threatening, Hospitalization)
  Sender: SANDOZ
  Company Number: NL-NOVPHSZ-PHHY2019NL148513

PATIENT
  Age: 9 Year
  Sex: Female

DRUGS (39)
  1. LAPINE T-LYMPHOCYTE IMMUNE GLOBULIN [Suspect]
     Active Substance: LAPINE T-LYMPHOCYTE IMMUNE GLOBULIN
     Indication: Product used for unknown indication
     Dosage: 67 MG, QD
     Route: 065
     Dates: start: 20180807, end: 20180808
  2. CLEMASTINE [Suspect]
     Active Substance: CLEMASTINE
     Indication: Product used for unknown indication
     Dosage: 0.9 MG, UNK
     Route: 065
     Dates: start: 20180807, end: 20180808
  3. CLEMASTINE [Suspect]
     Active Substance: CLEMASTINE
     Dosage: 450 MG, QD
     Route: 065
     Dates: start: 20180811, end: 20180812
  4. CYCLOSPORINE [Suspect]
     Active Substance: CYCLOSPORINE
     Indication: Product used for unknown indication
     Dosage: 460 MG, UNK (20-AUG-2018)
     Route: 065
     Dates: end: 20180918
  5. PREDNISOLONE [Suspect]
     Active Substance: PREDNISOLONE
     Dosage: 30 MG, UNK
     Route: 065
     Dates: start: 20180818, end: 20240923
  6. PREDNISOLONE [Suspect]
     Active Substance: PREDNISOLONE
     Indication: Product used for unknown indication
     Dosage: 60 MG, QD
     Route: 065
     Dates: start: 20180807, end: 20190808
  7. ACYCLOVIR [Concomitant]
     Active Substance: ACYCLOVIR
     Indication: Prophylaxis
     Dosage: 510 MG, UNK
     Route: 042
     Dates: start: 20180816, end: 20180920
  8. AMLODIPINE [Concomitant]
     Active Substance: AMLODIPINE BESYLATE
     Indication: Product used for unknown indication
     Dosage: 6 MG, QD
     Route: 048
     Dates: start: 20180810, end: 20180905
  9. Bepanthen [Concomitant]
     Indication: Product used for unknown indication
     Dosage: UNK
     Route: 003
     Dates: start: 20180602, end: 20180921
  10. BUSULFAN [Concomitant]
     Active Substance: BUSULFAN
     Indication: Product used for unknown indication
     Dosage: UNK
     Route: 065
  11. BUSULFAN [Concomitant]
     Active Substance: BUSULFAN
     Indication: Product used for unknown indication
     Dosage: 127 MG, QD
     Route: 042
     Dates: start: 20180811, end: 20180814
  12. CEFTAZIDIME [Concomitant]
     Active Substance: CEFTAZIDIME
     Indication: Prophylaxis
     Dosage: 4500 MG, QD
     Route: 042
     Dates: start: 20180803, end: 20180806
  13. CIPROFLOXACIN [Concomitant]
     Active Substance: CIPROFLOXACIN
     Indication: Prophylaxis
     Dosage: 900 MG, QD
     Route: 042
     Dates: start: 20180806, end: 20180816
  14. CIPROFLOXACIN [Concomitant]
     Active Substance: CIPROFLOXACIN
     Dosage: 900 MG, QD
     Route: 042
     Dates: start: 20180816, end: 20180827
  15. CLOFARABINE [Concomitant]
     Active Substance: CLOFARABINE
     Dosage: 32 MG, QD
     Route: 040
     Dates: start: 20180811, end: 20180814
  16. CLOFARABINE [Concomitant]
     Active Substance: CLOFARABINE
     Indication: Product used for unknown indication
     Dosage: 32 MG, QD
     Route: 042
     Dates: start: 20180811, end: 20180814
  17. ESOMEPRAZOLE [Concomitant]
     Active Substance: ESOMEPRAZOLE
     Indication: Product used for unknown indication
     Dosage: 20 MG, QD
     Route: 048
     Dates: start: 20180611, end: 20180827
  18. ESOMEPRAZOLE [Concomitant]
     Active Substance: ESOMEPRAZOLE
     Indication: Product used for unknown indication
     Dosage: 20 MG, QD
     Route: 048
     Dates: start: 20180611, end: 20180827
  19. FILGRASTIM [Concomitant]
     Active Substance: FILGRASTIM
     Dosage: 300 MG (THERAPY START DATE UNKNOWN AND STOP DATE UNKNOWN)
     Route: 040
  20. FILGRASTIM [Concomitant]
     Active Substance: FILGRASTIM
     Indication: Product used for unknown indication
     Dosage: 300 MG, UNK
     Route: 042
  21. FLUDARABINE [Concomitant]
     Active Substance: FLUDARABINE PHOSPHATE
     Indication: Product used for unknown indication
     Dosage: 11 MG, QD
     Route: 042
     Dates: start: 20180811, end: 20180814
  22. FOSAPREPITANT [Concomitant]
     Active Substance: FOSAPREPITANT
     Dosage: 60 MG
     Route: 040
     Dates: start: 20180814, end: 20180819
  23. FOSAPREPITANT [Concomitant]
     Active Substance: FOSAPREPITANT
     Indication: Product used for unknown indication
     Dosage: 60 MG, UNK
     Route: 042
     Dates: start: 20180814, end: 20180819
  24. FUROSEMIDE [Concomitant]
     Active Substance: FUROSEMIDE
     Indication: Product used for unknown indication
     Dosage: 30 MG, UNK
     Route: 042
     Dates: start: 20180821, end: 20180825
  25. GRANISETRON [Concomitant]
     Active Substance: GRANISETRON
     Indication: Product used for unknown indication
     Dosage: 2 MG, QD
     Route: 042
     Dates: start: 20180718, end: 20180807
  26. GRANISETRON [Concomitant]
     Active Substance: GRANISETRON
     Dosage: 2 MG, QD
     Route: 042
     Dates: start: 20180815, end: 20180904
  27. MORPHINE [Concomitant]
     Active Substance: MORPHINE
     Dosage: 8 MG
     Route: 040
     Dates: start: 20180827, end: 20180831
  28. MORPHINE [Concomitant]
     Active Substance: MORPHINE
     Indication: Product used for unknown indication
     Dosage: 8 MG, UNK
     Route: 042
     Dates: start: 20180827, end: 20180831
  29. NOVORAPID [Concomitant]
     Active Substance: INSULIN ASPART
     Indication: Product used for unknown indication
     Dosage: UNK
     Route: 042
     Dates: start: 20180819, end: 20180923
  30. ACETAMINOPHEN [Concomitant]
     Active Substance: ACETAMINOPHEN
     Indication: Product used for unknown indication
     Dosage: 1800 MG, QD
     Route: 042
     Dates: start: 20180802, end: 20180807
  31. ACETAMINOPHEN [Concomitant]
     Active Substance: ACETAMINOPHEN
     Dosage: 1800 MG, PRN
     Route: 042
     Dates: start: 20180813, end: 20180901
  32. PENICILLIN V [Concomitant]
     Active Substance: PENICILLIN V
     Indication: Product used for unknown indication
     Dosage: 1500 MG, QD
     Route: 048
     Dates: start: 20180714, end: 20180806
  33. TRAMADOL [Concomitant]
     Active Substance: TRAMADOL
     Indication: Product used for unknown indication
     Dosage: 120 MG, UNK
     Route: 048
     Dates: start: 20180824, end: 20180824
  34. TRANEXAMINEZUUR SANDOZ [Concomitant]
     Indication: Product used for unknown indication
     Dosage: 750 MG, QD
     Route: 042
     Dates: start: 20180731, end: 20180820
  35. VANCOMYCIN [Concomitant]
     Active Substance: VANCOMYCIN
     Dosage: 1000 MG, UNK
     Route: 065
     Dates: start: 20180806, end: 20180809
  36. VANCOMYCIN [Concomitant]
     Active Substance: VANCOMYCIN
     Indication: Product used for unknown indication
     Dosage: 1800 MG, QD
     Route: 042
     Dates: start: 20180803, end: 20180806
  37. VORICONAZOLE [Concomitant]
     Active Substance: VORICONAZOLE
     Dosage: 1000 MG, UNK
     Route: 042
     Dates: start: 20180806, end: 20180816
  38. VORICONAZOLE [Concomitant]
     Active Substance: VORICONAZOLE
     Dosage: 1000 MG, UNK
     Route: 042
     Dates: start: 20180816, end: 20180822
  39. VORICONAZOLE [Concomitant]
     Active Substance: VORICONAZOLE
     Indication: Prophylaxis
     Dosage: 700 MG, QD
     Route: 042
     Dates: start: 20180730, end: 20180806

REACTIONS (2)
  - Dyspnoea [Fatal]
  - Hyperglycaemia [Recovered/Resolved]

NARRATIVE: CASE EVENT DATE: 20180813
